FAERS Safety Report 7542812-1 (Version None)
Quarter: 2011Q2

REPORT INFORMATION
  Report Type: 
  Country: None (occurrence: None)
  Receive Date: 20110613
  Receipt Date: 20110602
  Transmission Date: 20111010
  Serious: Yes (Disabling, Other)
  Sender: FDA-Public Use
  Company Number: CA-ASTRAZENECA-2011SE27191

PATIENT
  Age: 52 Year
  Sex: Male

DRUGS (1)
  1. NEXIUM [Suspect]
     Route: 048

REACTIONS (10)
  - NECK PAIN [None]
  - WRIST FRACTURE [None]
  - PAIN [None]
  - OSTEOPOROSIS [None]
  - SPINAL FRACTURE [None]
  - CERVICAL VERTEBRAL FRACTURE [None]
  - ARTHRALGIA [None]
  - PAIN IN EXTREMITY [None]
  - BACK PAIN [None]
  - IMPAIRED WORK ABILITY [None]
